FAERS Safety Report 6283027-7 (Version None)
Quarter: 2009Q3

REPORT INFORMATION
  Report Type: 
  Country: None (occurrence: None)
  Receive Date: 20090724
  Receipt Date: 20090720
  Transmission Date: 20100115
  Serious: Yes (Hospitalization)
  Sender: FDA-Public Use
  Company Number: KR-BRISTOL-MYERS SQUIBB COMPANY-14711022

PATIENT
  Age: 55 Year
  Sex: Male

DRUGS (4)
  1. CETUXIMAB [Suspect]
     Indication: COLORECTAL CANCER
     Dosage: 1ST INF ON 22APR09
     Route: 042
     Dates: start: 20090422
  2. FLUOROURACIL [Suspect]
     Indication: COLORECTAL CANCER
     Dosage: 1ST INF ON 22APR09 IV BOLUS ON 22JUN09 (576 MG)
     Route: 042
     Dates: start: 20090422
  3. LEUCOVORIN CALCIUM [Suspect]
     Indication: COLORECTAL CANCER
     Dosage: 1ST INF ON 22APR09
     Route: 042
     Dates: start: 20090422
  4. OXALIPLATIN [Suspect]
     Indication: COLORECTAL CANCER
     Dosage: 1ST INF ON 22APR09
     Route: 042
     Dates: start: 20090422

REACTIONS (2)
  - POST PROCEDURAL FISTULA [None]
  - POSTOPERATIVE ABSCESS [None]
